FAERS Safety Report 7524995-2 (Version None)
Quarter: 2011Q2

REPORT INFORMATION
  Report Type: 
  Country: None (occurrence: None)
  Receive Date: 20110606
  Receipt Date: 20110527
  Transmission Date: 20111010
  Serious: Yes (Other)
  Sender: FDA-Public Use
  Company Number: JP-ASTELLAS-2011JP003380

PATIENT
  Age: 78 Year
  Sex: Female

DRUGS (2)
  1. PROGRAF [Suspect]
     Dosage: 0.5 MG, UNKNOWN/D
     Route: 048
  2. ITRACONAZOLE [Concomitant]
     Dosage: 200 MG, UNKNOWN/D
     Route: 041

REACTIONS (2)
  - POSTERIOR REVERSIBLE ENCEPHALOPATHY SYNDROME [None]
  - OFF LABEL USE [None]
